FAERS Safety Report 20363501 (Version 1)
Quarter: 2022Q1

REPORT INFORMATION
  Report Type: Spontaneous
  Country: US (occurrence: US)
  Receive Date: 20220121
  Receipt Date: 20220121
  Transmission Date: 20220423
  Serious: Yes (Other)
  Sender: FDA-Public Use
  Company Number: US-AUROBINDO-AUR-APL-2021-034967

PATIENT
  Weight: 118 kg

DRUGS (2)
  1. CLOZAPINE [Suspect]
     Active Substance: CLOZAPINE
     Indication: Schizoaffective disorder
     Dosage: 2 DOSAGE FORM, ONCE A DAY AT NIGHT
     Route: 048
     Dates: start: 20210517
  2. CLOZAPINE [Suspect]
     Active Substance: CLOZAPINE
     Indication: Schizoaffective disorder
     Dosage: 50 MILLIGRAM, ONCE A DAY
     Route: 048
     Dates: start: 20210622

REACTIONS (3)
  - Neutrophil count decreased [Recovered/Resolved]
  - White blood cell count abnormal [Recovered/Resolved]
  - Feeling abnormal [Unknown]
